FAERS Safety Report 13460926 (Version 1)
Quarter: 2017Q2

REPORT INFORMATION
  Report Type: Report from Study
  Country: GB (occurrence: GB)
  Receive Date: 20170420
  Receipt Date: 20170420
  Transmission Date: 20170830
  Serious: Yes (Other)
  Sender: FDA-Public Use
  Company Number: GB-ROCHE-1922363

PATIENT

DRUGS (2)
  1. RANIBIZUMAB [Concomitant]
     Active Substance: RANIBIZUMAB
     Indication: RETINAL HAEMORRHAGE
     Dosage: 0.05ML MONTHLY
     Route: 065
  2. ALTEPLASE [Suspect]
     Active Substance: ALTEPLASE
     Indication: RETINAL HAEMORRHAGE
     Dosage: 125 MICROGRAM/ML
     Route: 031

REACTIONS (1)
  - Retinal detachment [Unknown]
